FAERS Safety Report 5137977-5 (Version None)
Quarter: 2006Q4

REPORT INFORMATION
  Report Type: 
  Country: None (occurrence: None)
  Receive Date: 20061030
  Receipt Date: 20061019
  Transmission Date: 20070319
  Serious: Yes (Hospitalization)
  Sender: FDA-Public Use
  Company Number: FR-JNJFOC-20060905257

PATIENT
  Age: 25 Year
  Sex: Female

DRUGS (3)
  1. RISPERDAL [Suspect]
     Indication: DRUG USE FOR UNKNOWN INDICATION
     Route: 048
  2. DI-HYDAN [Suspect]
     Indication: EPILEPSY
     Route: 048
  3. URBANYL [Concomitant]
     Route: 065

REACTIONS (1)
  - BONE MARROW FAILURE [None]
